FAERS Safety Report 6399277-5 (Version None)
Quarter: 2009Q4

REPORT INFORMATION
  Report Type: 
  Country: None (occurrence: None)
  Receive Date: 20091014
  Receipt Date: 20091006
  Transmission Date: 20100525
  Serious: Yes (Death, Hospitalization)
  Sender: FDA-Public Use
  Company Number: US-BIOGENIDEC-2008BI027331

PATIENT
  Age: 55 Year
  Sex: Female

DRUGS (2)
  1. AVONEX [Suspect]
     Indication: MULTIPLE SCLEROSIS
     Route: 030
     Dates: start: 20030623
  2. AVONEX [Suspect]
     Route: 030
     Dates: start: 20080301, end: 20090930

REACTIONS (3)
  - PAIN [None]
  - PULMONARY EMBOLISM [None]
  - SARCOMA [None]
